FAERS Safety Report 8592646-4 (Version None)
Quarter: 2012Q3

REPORT INFORMATION
  Report Type: 
  Country: None (occurrence: None)
  Receive Date: 20120814
  Receipt Date: 20120803
  Transmission Date: 20120928
  Serious: Yes (Other)
  Sender: FDA-Public Use
  Company Number: US-ELI_LILLY_AND_COMPANY-US201201001308

PATIENT
  Sex: Female

DRUGS (1)
  1. HUMATROPE [Suspect]
     Indication: DEPRESSION
     Dosage: 0.4 MG, QD
     Dates: start: 20080101

REACTIONS (6)
  - SURGERY [None]
  - INFLUENZA [None]
  - RASH MACULAR [None]
  - HAEMORRHAGE [None]
  - DRUG DOSE OMISSION [None]
  - OFF LABEL USE [None]
